FAERS Safety Report 4796230-X (Version None)
Quarter: 2005Q4

REPORT INFORMATION
  Report Type: 
  Country: None (occurrence: None)
  Receive Date: 20051013
  Receipt Date: 20050629
  Transmission Date: 20060501
  Serious: Yes (Hospitalization)
  Sender: FDA-Public Use
  Company Number: JP-BOEHRINGER INGELHEIM PHARMACEUTICALS, INC.-2005-BP-11028NB

PATIENT
  Sex: Male

DRUGS (8)
  1. BI-SIFROL TABLETS [Suspect]
     Indication: PARKINSON'S DISEASE
     Route: 048
     Dates: start: 20050516, end: 20050620
  2. MADOPAR [Concomitant]
     Indication: PARKINSON'S DISEASE
     Route: 048
     Dates: start: 20041212
  3. ARICEPT [Concomitant]
     Indication: DIABETES MELLITUS
     Route: 048
     Dates: start: 20030814
  4. SYMMETREL [Concomitant]
     Indication: PARKINSON'S DISEASE
     Route: 048
     Dates: start: 20030814
  5. FP [Concomitant]
     Indication: PARKINSON'S DISEASE
     Route: 048
     Dates: start: 20030830
  6. SERMION [Concomitant]
     Route: 048
     Dates: start: 20030814
  7. ALOSENN [Concomitant]
     Route: 048
     Dates: start: 20050516
  8. CYANOCOBALAMIN [Concomitant]
     Route: 048
     Dates: start: 20030414

REACTIONS (3)
  - CHOLANGITIS [None]
  - GALLBLADDER DISORDER [None]
  - LIVER DISORDER [None]
